FAERS Safety Report 4977586-1 (Version None)
Quarter: 2006Q2

REPORT INFORMATION
  Report Type: 
  Country: None (occurrence: None)
  Receive Date: 20060420
  Receipt Date: 20060117
  Transmission Date: 20061013
  Serious: Yes (Hospitalization, Other)
  Sender: FDA-Public Use
  Company Number: PHEH2006US01036

PATIENT
  Age: 49 Year
  Sex: Female

DRUGS (9)
  1. CISPLATIN [Concomitant]
     Dosage: 39 MG, UNK
     Dates: start: 20040316, end: 20041103
  2. CARBOPLATIN [Concomitant]
     Indication: NEUROPATHY PERIPHERAL
     Dosage: 270 MG, UNK
  3. CARBOPLATIN [Concomitant]
     Dosage: 540 MG, UNK
     Dates: start: 20050831, end: 20050923
  4. CARBOPLATIN [Concomitant]
     Dosage: 450 MG, UNK
  5. TAXOL [Concomitant]
     Dosage: 12.5 MG, QWEEK X 2, 1 WEEK OFF
     Dates: start: 20040316, end: 20041103
  6. TAXOL [Concomitant]
     Dosage: 125 MG, QWEEK X 2, WITH 1 WEEK OFF
     Dates: end: 20050809
  7. TAXOL [Concomitant]
     Dosage: 290 MG, Q21 DAYS
     Dates: start: 20050830, end: 20050923
  8. TAXOL [Concomitant]
     Dosage: 290 MG, Q21 DAYS
  9. ZOMETA [Suspect]
     Indication: METASTASES TO BONE
     Dosage: 4 MG, Q4WEEKS
     Dates: start: 20040621, end: 20050923

REACTIONS (4)
  - ANAEMIA [None]
  - JAW DISORDER [None]
  - OSTEONECROSIS [None]
  - TOOTH EXTRACTION [None]
